FAERS Safety Report 10188220 (Version 1)
Quarter: 2014Q2

REPORT INFORMATION
  Report Type: Spontaneous
  Country: DE (occurrence: DE)
  Receive Date: 20140522
  Receipt Date: 20140522
  Transmission Date: 20141212
  Serious: Yes (Hospitalization)
  Sender: FDA-Public Use
  Company Number: DE-ASTRAZENECA-2014SE32879

PATIENT
  Age: 75 Year
  Sex: Male

DRUGS (19)
  1. QUETIAPINE [Suspect]
     Route: 048
     Dates: start: 20131103, end: 20131103
  2. QUETIAPINE [Suspect]
     Route: 048
     Dates: start: 20131104, end: 20131105
  3. QUETIAPINE [Suspect]
     Route: 048
     Dates: start: 20131106, end: 20131108
  4. QUETIAPINE [Suspect]
     Route: 048
     Dates: start: 20131109, end: 20131112
  5. QUETIAPINE [Suspect]
     Route: 048
     Dates: start: 20131113, end: 20131115
  6. QUETIAPINE [Suspect]
     Route: 048
     Dates: start: 20131116, end: 20131118
  7. QUETIAPINE [Suspect]
     Route: 048
     Dates: start: 20131119, end: 20131121
  8. QUETIAPINE [Suspect]
     Route: 048
     Dates: start: 20131122, end: 20140216
  9. QUETIAPINE [Suspect]
     Route: 048
     Dates: start: 20140217, end: 20140224
  10. QUETIAPINE [Suspect]
     Route: 048
     Dates: start: 20140225, end: 20140303
  11. QUETIAPINE [Suspect]
     Route: 048
     Dates: start: 20140311
  12. QUETIAPINE [Suspect]
     Route: 048
     Dates: start: 20140304, end: 20140306
  13. QUETIAPINE [Suspect]
     Route: 048
     Dates: start: 20140307, end: 20140310
  14. VALPROAT [Suspect]
     Route: 048
     Dates: start: 20130301, end: 20131101
  15. VALPROAT [Suspect]
     Route: 048
     Dates: start: 20131102, end: 20131110
  16. VALPROAT [Suspect]
     Route: 048
     Dates: start: 20131111
  17. ABILIFY [Concomitant]
  18. FINASTERIDE [Concomitant]
     Route: 048
     Dates: start: 20131101
  19. ALFUZOSINE [Concomitant]
     Route: 048
     Dates: start: 20131101

REACTIONS (2)
  - Parkinsonism [Recovering/Resolving]
  - Drug interaction [Recovering/Resolving]
